FAERS Safety Report 5512994-1 (Version None)
Quarter: 2007Q4

REPORT INFORMATION
  Report Type: 
  Country: None (occurrence: None)
  Receive Date: 20071112
  Receipt Date: 20071108
  Transmission Date: 20080405
  Serious: Yes (Hospitalization)
  Sender: FDA-Public Use
  Company Number: US-ASTRAZENECA-2007UW25961

PATIENT
  Age: 76 Year
  Sex: Female
  Weight: 93 kg

DRUGS (10)
  1. NEXIUM [Suspect]
     Indication: DIVERTICULUM
     Route: 048
  2. ABILIFY [Concomitant]
  3. ASPIRIN [Concomitant]
  4. LIPITOR [Concomitant]
  5. LASIX [Concomitant]
  6. LEVOTHYROXINE SODIUM [Concomitant]
  7. NIACIN [Concomitant]
  8. POTASSIUM CHLORIDE [Concomitant]
  9. ZOLOFT [Concomitant]
  10. LORAZEPAM [Concomitant]

REACTIONS (2)
  - DELUSIONAL DISORDER, UNSPECIFIED TYPE [None]
  - DEMENTIA [None]
